FAERS Safety Report 7551918-2 (Version None)
Quarter: 2011Q2

REPORT INFORMATION
  Report Type: 
  Country: None (occurrence: None)
  Receive Date: 20110616
  Receipt Date: 20110606
  Transmission Date: 20111010
  Serious: Yes (Hospitalization)
  Sender: FDA-Public Use
  Company Number: US-BAYER-201032366NA

PATIENT
  Age: 47 Year
  Sex: Female
  Weight: 55.782 kg

DRUGS (1)
  1. YAZ [Suspect]
     Indication: ORAL CONTRACEPTION
     Dosage: UNK
     Route: 048
     Dates: start: 20080201, end: 20081101

REACTIONS (2)
  - PAIN [None]
  - DEEP VEIN THROMBOSIS [None]
